FAERS Safety Report 8254890 (Version 3)
Quarter: 2016Q4

REPORT INFORMATION
  Report Type: Report from Study
  Country: US (occurrence: US)
  Receive Date: 20111118
  Receipt Date: 20161006
  Transmission Date: 20170207
  Serious: Yes (Life-Threatening, Hospitalization, Other)
  Sender: FDA-Public Use
  Company Number: US-ROCHE-798273

PATIENT
  Age: 77 Year
  Sex: Female
  Weight: 123.4 kg

DRUGS (27)
  1. HYDRALAZINE [Suspect]
     Active Substance: HYDRALAZINE HYDROCHLORIDE
     Indication: PRODUCT USED FOR UNKNOWN INDICATION
     Route: 065
  2. VITAMIN D3 [Concomitant]
     Active Substance: CHOLECALCIFEROL
     Indication: PRODUCT USED FOR UNKNOWN INDICATION
  3. BEVACIZUMAB [Suspect]
     Active Substance: BEVACIZUMAB
     Indication: ENDOMETRIAL CANCER
     Dosage: OVER 30-90 MINUTES ON DAY 1 (STARTING WITH CYCLE 2 FOR THOSE PTS ENTERING POST SURGERY) X 6 CYCLES;
     Route: 042
     Dates: start: 20110526, end: 20130913
  4. IXABEPILONE [Suspect]
     Active Substance: IXABEPILONE
     Dosage: TREATMENT ASSIGNMENT CODE (TA) 3, COURSE 4
     Route: 042
     Dates: start: 20110811, end: 20130913
  5. OXYCODONE [Concomitant]
     Active Substance: OXYCODONE
     Indication: PRODUCT USED FOR UNKNOWN INDICATION
  6. ZOFRAN [Concomitant]
     Active Substance: ONDANSETRON HYDROCHLORIDE
     Indication: PRODUCT USED FOR UNKNOWN INDICATION
  7. PROCHLORPERAZINE. [Concomitant]
     Active Substance: PROCHLORPERAZINE
     Indication: PRODUCT USED FOR UNKNOWN INDICATION
  8. CARBOPLATIN. [Suspect]
     Active Substance: CARBOPLATIN
     Dosage: DOSE WAS DELAYED BY 14 DAYS. UNIT DOSE WAS ALSO REDUCED.
     Route: 042
  9. LORAZEPAM. [Suspect]
     Active Substance: LORAZEPAM
     Indication: PRODUCT USED FOR UNKNOWN INDICATION
     Route: 065
  10. METOPROLOL. [Suspect]
     Active Substance: METOPROLOL
     Indication: PRODUCT USED FOR UNKNOWN INDICATION
     Route: 065
  11. ADVAIR HFA [Concomitant]
     Active Substance: FLUTICASONE PROPIONATE\SALMETEROL XINAFOATE
     Indication: PRODUCT USED FOR UNKNOWN INDICATION
  12. NIPRIDE [Concomitant]
     Active Substance: SODIUM NITROPRUSSIDE
     Indication: PRODUCT USED FOR UNKNOWN INDICATION
  13. IXABEPILONE [Suspect]
     Active Substance: IXABEPILONE
     Dosage: DOSE WAS DELAYED BY 14 DAYS
     Route: 042
  14. CARBOPLATIN. [Suspect]
     Active Substance: CARBOPLATIN
     Indication: ENDOMETRIAL CANCER
     Dosage: AUC = 6 IV OVER 30 MINUTES ON DAY 1 X 6 CYCLES; TOTAL DOSE ADMINISTERED: 415 MG;LAST ADMINISTERED DA
     Route: 042
  15. CLONIDINE. [Concomitant]
     Active Substance: CLONIDINE
     Indication: PRODUCT USED FOR UNKNOWN INDICATION
  16. PRAZOSIN [Concomitant]
     Active Substance: PRAZOSIN
     Indication: PRODUCT USED FOR UNKNOWN INDICATION
  17. CEPHALEXIN. [Concomitant]
     Active Substance: CEPHALEXIN
     Indication: PRODUCT USED FOR UNKNOWN INDICATION
  18. ALLOPURINOL. [Concomitant]
     Active Substance: ALLOPURINOL
     Indication: PRODUCT USED FOR UNKNOWN INDICATION
  19. IXABEPILONE [Suspect]
     Active Substance: IXABEPILONE
     Dosage: TREATMENT ASSIGNMENT CODE (TA) 3, COURSE 2
     Route: 042
  20. CARBOPLATIN. [Suspect]
     Active Substance: CARBOPLATIN
     Dosage: AUC = 5 IV OVER 30 MINUTES ON DAY 1 X 6 CYCLES
     Route: 042
  21. CHERATUSSIN AC [Concomitant]
     Active Substance: CODEINE PHOSPHATE\GUAIFENESIN
     Indication: PRODUCT USED FOR UNKNOWN INDICATION
  22. GLYCERYL TRINITRATE [Concomitant]
     Active Substance: NITROGLYCERIN
     Indication: PRODUCT USED FOR UNKNOWN INDICATION
  23. IXABEPILONE [Suspect]
     Active Substance: IXABEPILONE
     Indication: ENDOMETRIAL CANCER
     Dosage: OVER 1 HR ON DAY 1 X 6 CYCLES; TOTAL DOSE ADMINISTERED: 60 MG;LAST ADMINISTERED DATE:07/JUL/2011, TR
     Route: 042
  24. IXABEPILONE [Suspect]
     Active Substance: IXABEPILONE
     Dosage: OVER 1 HR ON DAY 1 X 6 CYCLES;
     Route: 042
  25. FUROSEMIDE. [Suspect]
     Active Substance: FUROSEMIDE
     Indication: PRODUCT USED FOR UNKNOWN INDICATION
     Route: 065
  26. HALOPERIDOL. [Suspect]
     Active Substance: HALOPERIDOL
     Indication: PRODUCT USED FOR UNKNOWN INDICATION
     Route: 065
  27. KEPPRA [Concomitant]
     Active Substance: LEVETIRACETAM
     Indication: PRODUCT USED FOR UNKNOWN INDICATION

REACTIONS (27)
  - Neutrophil count decreased [Unknown]
  - Depressed level of consciousness [Unknown]
  - Platelet count decreased [Recovered/Resolved]
  - Hypoxia [Unknown]
  - Left ventricular dysfunction [Unknown]
  - Hypoxia [Recovered/Resolved]
  - Cerebrovascular accident [Unknown]
  - Bronchitis [Recovered/Resolved]
  - Neutrophil count decreased [Unknown]
  - Cardiac failure [Unknown]
  - Pleural effusion [Recovered/Resolved]
  - Bronchospasm [Unknown]
  - White blood cell count decreased [Unknown]
  - Confusional state [Unknown]
  - Bronchospasm [Recovered/Resolved]
  - Sinusitis [Unknown]
  - Hypertension [Unknown]
  - Dizziness [Unknown]
  - Seizure [Recovered/Resolved]
  - Neutropenic infection [Unknown]
  - Posterior reversible encephalopathy syndrome [Unknown]
  - Anaemia [Unknown]
  - Depressed level of consciousness [Unknown]
  - Wheezing [Recovered/Resolved]
  - Atelectasis [Unknown]
  - Cardiac failure [Unknown]
  - Seizure [Unknown]

NARRATIVE: CASE EVENT DATE: 20110719
